FAERS Safety Report 24137691 (Version 1)
Quarter: 2024Q3

REPORT INFORMATION
  Report Type: Spontaneous
  Country: AU (occurrence: AU)
  Receive Date: 20240725
  Receipt Date: 20240725
  Transmission Date: 20241016
  Serious: Yes (Other)
  Sender: TEVA
  Company Number: AU-TEVA-VS-3222489

PATIENT

DRUGS (5)
  1. FENTANYL [Suspect]
     Active Substance: FENTANYL\FENTANYL CITRATE
     Route: 065
  2. ORPHENADRINE [Suspect]
     Active Substance: ORPHENADRINE
     Route: 065
  3. ASPIRIN [Suspect]
     Active Substance: ASPIRIN
     Route: 065
  4. MELOXICAM [Suspect]
     Active Substance: MELOXICAM
     Route: 065
  5. PHENYTOIN [Suspect]
     Active Substance: PHENYTOIN
     Route: 065

REACTIONS (5)
  - Delirium [Unknown]
  - Intentional overdose [Unknown]
  - Somnolence [Unknown]
  - Toxicity to various agents [Unknown]
  - Urinary retention [Unknown]
